FAERS Safety Report 10632321 (Version 2)
Quarter: 2014Q4

REPORT INFORMATION
  Report Type: Spontaneous
  Country: US (occurrence: US)
  Receive Date: 20141205
  Receipt Date: 20141205
  Transmission Date: 20150529
  Serious: Yes (Other)
  Sender: FDA-Public Use
  Company Number: US-BRISTOL-MYERS SQUIBB COMPANY-21172309

PATIENT
  Age: 64 Year
  Sex: Female
  Weight: 59.41 kg

DRUGS (13)
  1. OSCAL [Concomitant]
     Active Substance: CALCIUM CARBONATE
     Dosage: 200 D-3.
  2. LORAZEPAM. [Concomitant]
     Active Substance: LORAZEPAM
     Dosage: TAB
  3. IBANDRONATE [Concomitant]
     Active Substance: IBANDRONATE SODIUM
     Dosage: TAB
  4. OMEGA-3 ACIDS [Concomitant]
     Active Substance: OMEGA-3 FATTY ACIDS
     Dosage: CAP
  5. MULTIVITAMIN [Concomitant]
     Active Substance: VITAMINS
     Dosage: CAP
  6. LASIX [Concomitant]
     Active Substance: FUROSEMIDE
     Dosage: TAB
  7. FENTANYL. [Concomitant]
     Active Substance: FENTANYL
  8. ORENCIA [Suspect]
     Active Substance: ABATACEPT
     Dosage: 1 DF = 125MG/ML.INTERRUPTED ON MAY-2014.?GIVEN INJECTION ON 10-JUL-2014
     Route: 058
     Dates: start: 201209
  9. PAXIL [Concomitant]
     Active Substance: PAROXETINE HYDROCHLORIDE
     Dosage: TAB
  10. GLUCOSAMINE [Concomitant]
     Active Substance: GLUCOSAMINE
     Dosage: CAP
  11. PREDNISONE. [Concomitant]
     Active Substance: PREDNISONE
     Dosage: TAB
  12. FOLIC ACID. [Concomitant]
     Active Substance: FOLIC ACID
     Dosage: TAB
  13. PRILOSEC [Concomitant]
     Active Substance: OMEPRAZOLE MAGNESIUM
     Dosage: CAP

REACTIONS (6)
  - Joint swelling [Unknown]
  - Oropharyngeal pain [Unknown]
  - Musculoskeletal pain [Unknown]
  - Mouth ulceration [Unknown]
  - Contusion [Unknown]
  - Diverticulitis [Unknown]
